FAERS Safety Report 4708375-0 (Version None)
Quarter: 2005Q3

REPORT INFORMATION
  Report Type: 
  Country: None (occurrence: None)
  Receive Date: 20050707
  Receipt Date: 20050316
  Transmission Date: 20060218
  Serious: Yes (Hospitalization)
  Sender: FDA-Public Use
  Company Number: JP-ROCHE-399549

PATIENT
  Age: 90 Year
  Sex: Female

DRUGS (17)
  1. TAMIFLU [Suspect]
     Route: 048
     Dates: start: 20050310, end: 20050313
  2. TAMIFLU [Suspect]
     Route: 048
     Dates: start: 20050314, end: 20050314
  3. ROCEPHIN [Suspect]
     Indication: PNEUMONIA
     Route: 042
     Dates: start: 20050310, end: 20050314
  4. ROCEPHIN [Suspect]
     Route: 042
     Dates: start: 20050316, end: 20050318
  5. CARBOCISTEINE [Concomitant]
     Indication: DRUG USE FOR UNKNOWN INDICATION
     Route: 048
     Dates: start: 20050310, end: 20050314
  6. THYRADIN [Concomitant]
     Route: 048
     Dates: start: 20010129
  7. ISOSORBIDE DINITRATE [Concomitant]
     Dosage: FORMULATION: TAPE
     Route: 061
     Dates: start: 20010129
  8. ALLOZYM [Concomitant]
     Route: 048
     Dates: start: 20010129
  9. MAGNESIUM OXIDE [Concomitant]
     Route: 048
     Dates: start: 20010129
  10. SENNOSIDE [Concomitant]
     Route: 048
     Dates: start: 20010129
  11. LASIX [Concomitant]
     Route: 048
     Dates: start: 20010704
  12. GLAKAY [Concomitant]
     Route: 048
     Dates: start: 20031126
  13. HYPEN [Concomitant]
     Route: 048
     Dates: start: 20040204
  14. HARNAL [Concomitant]
     Route: 048
     Dates: start: 20040414
  15. PANTOSIN [Concomitant]
     Route: 048
     Dates: start: 20040519
  16. KALIMATE [Concomitant]
     Route: 048
     Dates: start: 20050214
  17. HUSCODE [Concomitant]
     Dosage: MIXED WITH CHERRY (BROCIN) SOLUTION. DIVIDED INTO THREE.
     Route: 048
     Dates: start: 20050310, end: 20050314

REACTIONS (7)
  - ABNORMAL BEHAVIOUR [None]
  - AGGRESSION [None]
  - AGITATION [None]
  - C-REACTIVE PROTEIN INCREASED [None]
  - DELIRIUM [None]
  - REFUSAL OF TREATMENT BY PATIENT [None]
  - SPEECH DISORDER [None]
